FAERS Safety Report 8439099-4 (Version None)
Quarter: 2012Q2

REPORT INFORMATION
  Report Type: 
  Country: None (occurrence: None)
  Receive Date: 20120607
  Receipt Date: 20120523
  Transmission Date: 20120825
  Serious: Yes (Hospitalization, Other)
  Sender: FDA-Public Use
  Company Number: JP-1192351

PATIENT
  Age: 81 Year
  Sex: Female

DRUGS (2)
  1. AZOPT [Suspect]
     Indication: OPEN ANGLE GLAUCOMA
     Dosage: (OPHTHALMIC)
     Route: 047
     Dates: start: 20100101, end: 20101201
  2. PILOCARPINE [Suspect]
     Indication: OPEN ANGLE GLAUCOMA
     Dates: start: 20100101

REACTIONS (3)
  - GLAUCOMA [None]
  - VISUAL FIELD DEFECT [None]
  - DRUG INEFFECTIVE [None]
